FAERS Safety Report 6483733-5 (Version None)
Quarter: 2009Q4

REPORT INFORMATION
  Report Type: 
  Country: None (occurrence: None)
  Receive Date: 20091209
  Receipt Date: 20090504
  Transmission Date: 20100525
  Serious: No
  Sender: FDA-Public Use
  Company Number: US-AMGEN-KDL345595

PATIENT
  Sex: Female

DRUGS (1)
  1. ENBREL [Suspect]
     Indication: RHEUMATOID ARTHRITIS
     Route: 058
     Dates: start: 20080530

REACTIONS (5)
  - HEADACHE [None]
  - NASAL CONGESTION [None]
  - PYREXIA [None]
  - RHEUMATOID ARTHRITIS [None]
  - SINUS CONGESTION [None]
